FAERS Safety Report 8247203-6 (Version None)
Quarter: 2012Q1

REPORT INFORMATION
  Report Type: 
  Country: None (occurrence: None)
  Receive Date: 20120330
  Receipt Date: 20120322
  Transmission Date: 20120608
  Serious: Yes (Other)
  Sender: FDA-Public Use
  Company Number: US-BAYER-2012-028775

PATIENT
  Age: 33 Year
  Sex: Female
  Weight: 112.9 kg

DRUGS (1)
  1. DROSPIRENONE AND ETHINYL ESTRADIOL [Suspect]
     Dosage: UNK
     Dates: start: 20101201, end: 20110502

REACTIONS (8)
  - DEEP VEIN THROMBOSIS [None]
  - PELVIC VENOUS THROMBOSIS [None]
  - PAIN IN EXTREMITY [None]
  - MESENTERIC VEIN THROMBOSIS [None]
  - DYSPNOEA [None]
  - ABDOMINAL PAIN [None]
  - OEDEMA PERIPHERAL [None]
  - PULMONARY EMBOLISM [None]
